FAERS Safety Report 16944864 (Version 1)
Quarter: 2019Q4

REPORT INFORMATION
  Report Type: Spontaneous
  Country: US (occurrence: US)
  Receive Date: 20191022
  Receipt Date: 20191022
  Transmission Date: 20200122
  Serious: No
  Sender: FDA-Public Use
  Company Number: US-009507513-1909USA014158

PATIENT

DRUGS (1)
  1. STEGLATRO [Suspect]
     Active Substance: ERTUGLIFLOZIN PIDOLATE
     Dosage: 15 MG, 1 TABLET/DAILY
     Route: 048

REACTIONS (3)
  - Product packaging quantity issue [Unknown]
  - Product dose omission [Unknown]
  - Circumstance or information capable of leading to medication error [Unknown]
